FAERS Safety Report 18626616 (Version 1)
Quarter: 2020Q4

REPORT INFORMATION
  Report Type: Spontaneous
  Country: US (occurrence: US)
  Receive Date: 20201217
  Receipt Date: 20201217
  Transmission Date: 20210114
  Serious: No
  Sender: FDA-Public Use
  Company Number: US-BIOVITRUM-2020US7572

PATIENT
  Sex: Male
  Weight: 9 kg

DRUGS (7)
  1. GRIPE WATER 14-2.5-2/5 LIQUID [Concomitant]
  2. FAMOTIDINE 100 % POWDER [Concomitant]
  3. FLOVENT DISKUS 100 MCG BLST W/DEV, [Concomitant]
  4. SYNAGIS [Suspect]
     Active Substance: PALIVIZUMAB
     Indication: PREMATURE BABY
  5. SYNAGIS [Suspect]
     Active Substance: PALIVIZUMAB
     Indication: BRONCHOPULMONARY DYSPLASIA
     Route: 030
  6. ALBUTEROL SULFATE. [Concomitant]
     Active Substance: ALBUTEROL SULFATE
  7. POLY-VI-SOL WITH IRON [Concomitant]
     Active Substance: IRON\VITAMINS

REACTIONS (1)
  - Weight decreased [Unknown]
